FAERS Safety Report 17705541 (Version 6)
Quarter: 2020Q2

REPORT INFORMATION
  Report Type: Report from Study
  Country: MX (occurrence: MX)
  Receive Date: 20200424
  Receipt Date: 20200612
  Transmission Date: 20200714
  Serious: Yes (Other)
  Sender: FDA-Public Use
  Company Number: NVSC2020MX110379

PATIENT
  Age: 62 Year
  Sex: Male
  Weight: 114 kg

DRUGS (2)
  1. EXFORGE [Suspect]
     Active Substance: AMLODIPINE BESYLATE\VALSARTAN
     Indication: BLOOD PRESSURE INCREASED
     Dosage: (320/10 MG)
     Route: 065
  2. EXFORGE [Suspect]
     Active Substance: AMLODIPINE BESYLATE\VALSARTAN
     Indication: HYPERTENSION
     Dosage: 1 DF, QD
     Route: 048

REACTIONS (11)
  - Sleep disorder [Unknown]
  - Feeling abnormal [Recovering/Resolving]
  - Facial nerve disorder [Recovering/Resolving]
  - Oral discomfort [Unknown]
  - Headache [Unknown]
  - Blood pressure increased [Unknown]
  - Paralysis [Unknown]
  - Taste disorder [Unknown]
  - Feeling of despair [Unknown]
  - Anxiety [Unknown]
  - Dysgeusia [Unknown]

NARRATIVE: CASE EVENT DATE: 20200412
